FAERS Safety Report 26048481 (Version 1)
Quarter: 2025Q4

REPORT INFORMATION
  Report Type: Spontaneous
  Country: JP (occurrence: JP)
  Receive Date: 20251114
  Receipt Date: 20251114
  Transmission Date: 20260118
  Serious: Yes (Hospitalization, Other)
  Sender: PURDUE
  Company Number: JP-PURDUE-USA-2025-0322062

PATIENT
  Age: 55 Year
  Sex: Male
  Weight: 74.6 kg

DRUGS (13)
  1. FENOFIBRATE [Interacting]
     Active Substance: FENOFIBRATE
     Indication: Dyslipidaemia
     Dosage: 80 MILLIGRAM
     Route: 065
  2. MOLNUPIRAVIR [Interacting]
     Active Substance: MOLNUPIRAVIR
     Indication: COVID-19
     Dosage: 1600 MILLIGRAM, DAILY [EPISODE 1]
     Route: 065
     Dates: start: 202207
  3. MOLNUPIRAVIR [Interacting]
     Active Substance: MOLNUPIRAVIR
     Dosage: STARTED ON DAY 1 [EPISODE 2]
     Route: 065
     Dates: start: 202307
  4. MOLNUPIRAVIR [Interacting]
     Active Substance: MOLNUPIRAVIR
     Dosage: STARTED THE DAY OF DIAGNOSIS [EPISODE 3]
     Route: 065
     Dates: start: 202407
  5. LURASIDONE [Suspect]
     Active Substance: LURASIDONE
     Indication: Sleep disorder
     Dosage: 80 MILLIGRAM, DAILY
     Route: 065
  6. LITHIUM CARBONATE [Suspect]
     Active Substance: LITHIUM CARBONATE
     Indication: Sleep disorder
     Dosage: 800 MILLIGRAM, DAILY
     Route: 065
  7. TRAZODONE [Suspect]
     Active Substance: TRAZODONE HYDROCHLORIDE
     Indication: Sleep disorder
     Dosage: 50 MILLIGRAM, DAILY
     Route: 065
  8. SUVOREXANT [Suspect]
     Active Substance: SUVOREXANT
     Indication: Sleep disorder
     Dosage: 15 MILLIGRAM, DAILY
     Route: 065
  9. PEMAFIBRATE [Suspect]
     Active Substance: PEMAFIBRATE
     Indication: Dyslipidaemia
     Dosage: 0.2 MILLIGRAM, DAILY
     Route: 065
  10. PEMAFIBRATE [Suspect]
     Active Substance: PEMAFIBRATE
     Indication: Weight increased
  11. MODERNA COVID-19 VACCINE [Suspect]
     Active Substance: ELASOMERAN
     Indication: COVID-19
     Dosage: MODERNA MRNA VACCINE 5 MONTHS EARLIER, BUT TESTED POSITIVE
     Route: 065
     Dates: start: 202207
  12. MODERNA COVID-19 VACCINE [Suspect]
     Active Substance: ELASOMERAN
     Dosage: MODERNA MRNA VACCINE 2 WEEKS EARLIER, BUT AGAIN TESTED POSITIVE FOR SARS-COV-2.
     Route: 065
     Dates: start: 202307
  13. PFIZER-BIONTECH COVID-19 VACCINE [Suspect]
     Active Substance: TOZINAMERAN
     Indication: COVID-19
     Dosage: UNKNOWN
     Route: 065
     Dates: start: 202311

REACTIONS (7)
  - Somatic hallucination [Unknown]
  - Hallucination [Unknown]
  - SARS-CoV-2 test positive [Recovered/Resolved]
  - SARS-CoV-2 test positive [Recovered/Resolved]
  - SARS-CoV-2 test positive [Recovered/Resolved]
  - Drug interaction [Unknown]
  - Therapeutic response decreased [Unknown]

NARRATIVE: CASE EVENT DATE: 20220701
